APPROVED DRUG PRODUCT: DIHYDROERGOTAMINE MESYLATE
Active Ingredient: DIHYDROERGOTAMINE MESYLATE
Strength: 0.5MG/SPRAY
Dosage Form/Route: SPRAY, METERED;NASAL
Application: A216881 | Product #001 | TE Code: AB
Applicant: RUBICON RESEARCH LTD
Approved: Jun 22, 2023 | RLD: No | RS: No | Type: RX